FAERS Safety Report 5727506-7 (Version None)
Quarter: 2008Q2

REPORT INFORMATION
  Report Type: 
  Country: None (occurrence: None)
  Receive Date: 20080505
  Receipt Date: 20080425
  Transmission Date: 20081010
  Serious: Yes (Other)
  Sender: FDA-Public Use
  Company Number: US-ROCHE-557569

PATIENT
  Sex: Female
  Weight: 75.3 kg

DRUGS (3)
  1. PEGASYS [Suspect]
     Route: 065
     Dates: start: 20080131, end: 20080404
  2. COPEGUS [Suspect]
     Route: 065
     Dates: start: 20080131, end: 20080404
  3. UNSPECIFIED MEDICATIONS [Concomitant]
     Dosage: REPORTED AS ^PSYCH MEDS.^

REACTIONS (1)
  - GRAND MAL CONVULSION [None]
